FAERS Safety Report 9752459 (Version 1)
Quarter: 2013Q4

REPORT INFORMATION
  Report Type: Spontaneous
  Country: US (occurrence: US)
  Receive Date: 20131213
  Receipt Date: 20131213
  Transmission Date: 20140711
  Serious: No
  Sender: FDA-Public Use
  Company Number: US-009507513-1312USA000968

PATIENT
  Sex: Female

DRUGS (1)
  1. DULERA [Suspect]
     Dosage: 2 PUFFS TWICE DAILY
     Route: 055

REACTIONS (3)
  - Underdose [Unknown]
  - Product packaging issue [Unknown]
  - No adverse event [Unknown]
